FAERS Safety Report 12969997 (Version 1)
Quarter: 2016Q4

REPORT INFORMATION
  Report Type: Spontaneous
  Country: TR (occurrence: TR)
  Receive Date: 20161123
  Receipt Date: 20161123
  Transmission Date: 20170207
  Serious: Yes (Other)
  Sender: FDA-Public Use
  Company Number: TR-JNJFOC-20161117738

PATIENT
  Age: 54 Year
  Sex: Male

DRUGS (1)
  1. DUROGESIC [Suspect]
     Active Substance: FENTANYL
     Indication: TUMOUR PAIN
     Route: 062

REACTIONS (1)
  - Gastrointestinal haemorrhage [Not Recovered/Not Resolved]
